FAERS Safety Report 25717676 (Version 1)
Quarter: 2025Q3

REPORT INFORMATION
  Report Type: Spontaneous
  Country: JP (occurrence: JP)
  Receive Date: 20250822
  Receipt Date: 20250822
  Transmission Date: 20251021
  Serious: Yes (Hospitalization, Other)
  Sender: SANDOZ
  Company Number: JP-PFIZER INC-PV202500077970

PATIENT
  Age: 60 Year
  Sex: Male
  Weight: 55.8 kg

DRUGS (5)
  1. FLUOROURACIL [Suspect]
     Active Substance: FLUOROURACIL
     Dosage: 3459 MG, Q2W
     Route: 042
     Dates: start: 20250627
  2. FLUOROURACIL [Suspect]
     Active Substance: FLUOROURACIL
     Indication: Colorectal adenocarcinoma
     Dosage: 643 MG, BOLUS
     Route: 042
     Dates: start: 20250627
  3. BEVACIZUMAB [Suspect]
     Active Substance: BEVACIZUMAB
     Indication: Colorectal adenocarcinoma
     Dosage: 262 MG, Q2W
     Route: 042
     Dates: start: 20250627
  4. LEVOLEUCOVORIN CALCIUM [Suspect]
     Active Substance: LEVOLEUCOVORIN CALCIUM
     Indication: Colorectal adenocarcinoma
     Dosage: 321 MG, Q2W
     Route: 042
     Dates: start: 20250627
  5. OXALIPLATIN [Suspect]
     Active Substance: OXALIPLATIN
     Indication: Colorectal adenocarcinoma
     Dosage: 136 MG, Q2W
     Route: 042
     Dates: start: 20250627

REACTIONS (1)
  - Delirium [Recovered/Resolved]

NARRATIVE: CASE EVENT DATE: 20250628
